FAERS Safety Report 4437727-1 (Version None)
Quarter: 2004Q3

REPORT INFORMATION
  Report Type: 
  Country: None (occurrence: None)
  Receive Date: 20040831
  Receipt Date: 20040827
  Transmission Date: 20050211
  Serious: Yes (Hospitalization, Other)
  Sender: FDA-Public Use
  Company Number: PHEH2004US09346

PATIENT
  Age: 62 Year
  Sex: Female

DRUGS (1)
  1. VIVELLE-DOT [Suspect]
     Indication: MENOPAUSE
     Dosage: .05 MG, TWICE WEEKLY
     Route: 062

REACTIONS (4)
  - ABDOMINAL PAIN [None]
  - ANOREXIA [None]
  - CHOLECYSTECTOMY [None]
  - NUCLEAR MAGNETIC RESONANCE IMAGING [None]
